FAERS Safety Report 4422689-3 (Version None)
Quarter: 2004Q3

REPORT INFORMATION
  Report Type: 
  Country: None (occurrence: None)
  Receive Date: 20040713
  Receipt Date: 20030728
  Transmission Date: 20050211
  Serious: No
  Sender: FDA-Public Use
  Company Number: PHEH2003US06088

PATIENT
  Age: 56 Year
  Sex: Female

DRUGS (4)
  1. ELIDEL [Suspect]
     Indication: ECZEMA
     Dosage: QD, TOPICAL
     Route: 061
     Dates: start: 20030620, end: 20030704
  2. PREMARIN [Concomitant]
  3. CALCIUM [Concomitant]
  4. WELLBUTRIN [Concomitant]

REACTIONS (3)
  - APPLICATION SITE BURNING [None]
  - APPLICATION SITE PRURITUS [None]
  - RASH [None]
